FAERS Safety Report 9226171 (Version 2)
Quarter: 2013Q2

REPORT INFORMATION
  Report Type: Spontaneous
  Country: JP (occurrence: JP)
  Receive Date: 20130411
  Receipt Date: 20130510
  Transmission Date: 20140414
  Serious: Yes (Other)
  Sender: FDA-Public Use
  Company Number: JP-NAPPMUNDI-DEU-2013-0011144

PATIENT
  Age: 81 Year
  Sex: Female

DRUGS (10)
  1. BUPRENORPHINE TRANSDERMAL SYSTEM 5 MG [Suspect]
     Indication: ARTHRALGIA
     Dosage: 5 MCG, Q1H
     Route: 062
     Dates: start: 20130309, end: 20130313
  2. BUPRENORPHINE TRANSDERMAL SYSTEM 5 MG [Suspect]
     Dosage: 10 MCG, Q1H
     Route: 062
     Dates: start: 20130221, end: 20130309
  3. BUPRENORPHINE TRANSDERMAL SYSTEM 5 MG [Suspect]
     Dosage: 20 MCG, Q1H
     Route: 062
     Dates: start: 20130207, end: 20130207
  4. BUPRENORPHINE TRANSDERMAL SYSTEM 5 MG [Suspect]
     Dosage: 10 MCG, Q1H
     Route: 062
     Dates: start: 20130123, end: 20130207
  5. BUPRENORPHINE TRANSDERMAL SYSTEM 5 MG [Suspect]
     Dosage: 5 MCG, Q1H
     Route: 062
     Dates: start: 20121215, end: 20130123
  6. ROHYPNOL [Concomitant]
     Indication: INSOMNIA
     Dosage: 1 DF, UNK
     Route: 048
  7. LEXOTAN [Concomitant]
     Indication: DEPRESSION
     Dosage: 4 DF, UNK
     Route: 048
  8. RIZE                               /00624801/ [Concomitant]
     Indication: DEPRESSION
     Dosage: 4 DF, UNK
     Route: 048
  9. TRAMACET [Concomitant]
     Dosage: 1 DF, DAILY
     Route: 048
     Dates: start: 20121215
  10. PRIMPERAN [Concomitant]
     Dosage: UNK
     Dates: start: 20130123

REACTIONS (2)
  - Delirium [Recovering/Resolving]
  - Dizziness [Unknown]
